FAERS Safety Report 10168705 (Version 1)
Quarter: 2014Q2

REPORT INFORMATION
  Report Type: Spontaneous
  Country: US (occurrence: None)
  Receive Date: 20140512
  Receipt Date: 20140512
  Transmission Date: 20141212
  Serious: Yes (Life-Threatening, Other)
  Sender: FDA-Public Use
  Company Number: None

PATIENT
  Age: 6 Year
  Sex: Female
  Weight: 21.32 kg

DRUGS (1)
  1. CHILDREN^S IBUPROFEN [Suspect]
     Indication: PYREXIA

REACTIONS (3)
  - Hypersensitivity [None]
  - Lip swelling [None]
  - Swollen tongue [None]
